FAERS Safety Report 8984518 (Version 1)
Quarter: 2012Q4

REPORT INFORMATION
  Report Type: 
  Country: US (occurrence: US)
  Receive Date: 20121226
  Receipt Date: 20121226
  Transmission Date: 20130627
  Serious: Yes (Other)
  Sender: FDA-Public Use
  Company Number: US-JNJFOC-20121211124

PATIENT
  Sex: Female

DRUGS (5)
  1. ORTHO TRI CYCLEN LO [Suspect]
     Indication: CONTRACEPTION
     Dosage: treatment A, from days 1 to 21
     Route: 065
  2. ORTHO CYCLEN [Suspect]
     Indication: CONTRACEPTION
     Dosage: treatment B, first cycle from days 29 to 56
     Route: 048
  3. ORTHO CYCLEN [Suspect]
     Indication: CONTRACEPTION
     Dosage: treatment D; from days 71 to 77
     Route: 048
  4. ORTHO CYCLEN [Suspect]
     Indication: CONTRACEPTION
     Dosage: treatment C, second cycle, period 3, days 57-77
     Route: 048
  5. EFAVIRENZ [Interacting]
     Indication: PRODUCT USED FOR UNKNOWN INDICATION
     Dosage: treatment C; from days 57-70
     Route: 065

REACTIONS (2)
  - Suicide attempt [Unknown]
  - Drug interaction [Unknown]
